FAERS Safety Report 21337150 (Version 1)
Quarter: 2022Q3

REPORT INFORMATION
  Report Type: Spontaneous
  Country: BR (occurrence: BR)
  Receive Date: 20220915
  Receipt Date: 20220915
  Transmission Date: 20221027
  Serious: Yes (Hospitalization, Other)
  Sender: FDA-Public Use
  Company Number: BR-GLAXOSMITHKLINE-BR2021AMR095244

PATIENT

DRUGS (2)
  1. BENLYSTA [Suspect]
     Active Substance: BELIMUMAB
     Indication: Systemic lupus erythematosus
     Dosage: 800 MG, Z EVERY 28 DAYS
     Route: 042
     Dates: start: 20191127, end: 20220602
  2. BENLYSTA [Suspect]
     Active Substance: BELIMUMAB
     Dosage: 120 MG
     Route: 042
     Dates: start: 20220705

REACTIONS (8)
  - Mastitis [Not Recovered/Not Resolved]
  - Hospitalisation [Recovered/Resolved]
  - Influenza [Unknown]
  - Coronavirus infection [Recovered/Resolved]
  - SARS-CoV-2 test positive [Recovered/Resolved]
  - Nodule [Not Recovered/Not Resolved]
  - Product dose omission issue [Unknown]
  - Inappropriate schedule of product administration [Unknown]

NARRATIVE: CASE EVENT DATE: 20210101
